FAERS Safety Report 23124213 (Version 1)
Quarter: 2023Q4

REPORT INFORMATION
  Report Type: Spontaneous
  Country: US (occurrence: None)
  Receive Date: 20231027
  Receipt Date: 20231027
  Transmission Date: 20240109
  Serious: No
  Sender: FDA-Public Use
  Company Number: None

PATIENT
  Age: 69 Year
  Sex: Male
  Weight: 112.5 kg

DRUGS (4)
  1. DICLOFENAC SODIUM [Suspect]
     Active Substance: DICLOFENAC\DICLOFENAC SODIUM
     Indication: Meralgia paraesthetica
     Dosage: OTHER QUANTITY : 4 GRAMS;?FREQUENCY : 4 TIMES A DAY;?
     Route: 061
  2. icd [Concomitant]
  3. heart meds [Concomitant]
  4. HYDROXYCHLOROQUINE [Concomitant]
     Active Substance: HYDROXYCHLOROQUINE

REACTIONS (1)
  - Taste disorder [None]

NARRATIVE: CASE EVENT DATE: 20231027
